FAERS Safety Report 14583788 (Version 6)
Quarter: 2019Q1

REPORT INFORMATION
  Report Type: Report from Study
  Country: CA (occurrence: CA)
  Receive Date: 20180228
  Receipt Date: 20190221
  Transmission Date: 20190417
  Serious: Yes (Hospitalization)
  Sender: FDA-Public Use
  Company Number: PHHY2016CA088945

PATIENT
  Age: 25 Year
  Sex: Female

DRUGS (10)
  1. XOLAIR [Suspect]
     Active Substance: OMALIZUMAB
     Indication: CHRONIC SPONTANEOUS URTICARIA
     Dosage: 300 MG, EVERY 4 WEEKS
     Route: 058
     Dates: start: 20160622
  2. XOLAIR [Suspect]
     Active Substance: OMALIZUMAB
     Dosage: 300 MG, EVERY 3 WEEKS
     Route: 058
  3. ZANTAC [Concomitant]
     Active Substance: RANITIDINE HYDROCHLORIDE
     Indication: PRODUCT USED FOR UNKNOWN INDICATION
     Dosage: 2 DF, QD
     Route: 065
     Dates: start: 20150601
  4. ZANTAC [Concomitant]
     Active Substance: RANITIDINE HYDROCHLORIDE
     Dosage: UNK
     Route: 065
     Dates: start: 20150701
  5. XOLAIR [Suspect]
     Active Substance: OMALIZUMAB
     Dosage: 300 MG, EVERY 3 WEEKS
     Route: 058
     Dates: start: 20190204
  6. XOLAIR [Suspect]
     Active Substance: OMALIZUMAB
     Dosage: 300 MG, EVERY 3 WEEKS
     Route: 058
     Dates: start: 20180123
  7. MONTELUKAST SODIUM. [Suspect]
     Active Substance: MONTELUKAST SODIUM
     Indication: PRODUCT USED FOR UNKNOWN INDICATION
     Dosage: 10 MG, QD
     Route: 065
  8. REACTINE [CETIRIZINE HYDROCHLORIDE] [Concomitant]
     Active Substance: CETIRIZINE HYDROCHLORIDE
     Indication: PRODUCT USED FOR UNKNOWN INDICATION
     Dosage: 1 DF (40 MG), QD
     Route: 065
     Dates: start: 20150601
  9. XOLAIR [Suspect]
     Active Substance: OMALIZUMAB
     Dosage: UNK
     Route: 058
     Dates: start: 20170314
  10. XOLAIR [Suspect]
     Active Substance: OMALIZUMAB
     Indication: CHRONIC SPONTANEOUS URTICARIA
     Dosage: 300 MG, EVERY 3 WEEKS
     Route: 058
     Dates: start: 20180516

REACTIONS (13)
  - Postural orthostatic tachycardia syndrome [Recovered/Resolved]
  - Anaphylactic reaction [Recovered/Resolved]
  - Postural orthostatic tachycardia syndrome [Unknown]
  - Ehlers-Danlos syndrome [Recovered/Resolved]
  - Mast cell activation syndrome [Recovered/Resolved]
  - Injection site bruising [Unknown]
  - Device related infection [Unknown]
  - Hypoglycaemia [Unknown]
  - Mastocytosis [Unknown]
  - Feeling hot [Recovering/Resolving]
  - Staphylococcal infection [Unknown]
  - Injection site discomfort [Unknown]
  - Injection site pain [Unknown]

NARRATIVE: CASE EVENT DATE: 20160622
